FAERS Safety Report 14395979 (Version 1)
Quarter: 2018Q1

REPORT INFORMATION
  Report Type: Spontaneous
  Country: US (occurrence: US)
  Receive Date: 20180116
  Receipt Date: 20180116
  Transmission Date: 20180509
  Serious: No
  Sender: FDA-Public Use
  Company Number: US-ALLERGAN-1715428US

PATIENT
  Age: 48 Year
  Sex: Female

DRUGS (4)
  1. BOTOX [Suspect]
     Active Substance: ONABOTULINUMTOXINA
     Indication: MUSCLE SPASTICITY
  2. BACLOFEN. [Concomitant]
     Active Substance: BACLOFEN
     Indication: PRODUCT USED FOR UNKNOWN INDICATION
     Route: 048
  3. VALIUM [Concomitant]
     Active Substance: DIAZEPAM
     Indication: PRODUCT USED FOR UNKNOWN INDICATION
     Route: 048
  4. BOTOX [Suspect]
     Active Substance: ONABOTULINUMTOXINA
     Indication: MUSCULOSKELETAL STIFFNESS
     Dosage: 175 UNITS, SINGLE
     Route: 030
     Dates: start: 201703, end: 201703

REACTIONS (1)
  - Loss of consciousness [Recovered/Resolved]

NARRATIVE: CASE EVENT DATE: 201703
